FAERS Safety Report 6536198-9 (Version None)
Quarter: 2010Q1

REPORT INFORMATION
  Report Type: 
  Country: None (occurrence: None)
  Receive Date: 20100113
  Receipt Date: 20091102
  Transmission Date: 20100710
  Serious: No
  Sender: FDA-Public Use
  Company Number: US-ALLERGAN-0915159US

PATIENT
  Age: 68 Year
  Sex: Female

DRUGS (8)
  1. LATISSE [Suspect]
     Indication: GROWTH OF EYELASHES
     Dosage: 1 GTT, SINGLE
     Route: 061
     Dates: start: 20091101, end: 20091101
  2. SYNTHROID [Concomitant]
  3. LASIX [Concomitant]
  4. HALCION [Concomitant]
  5. PRILOSEC [Concomitant]
  6. SIMVASTATIN [Concomitant]
  7. LEVORA 0.15/30-28 [Concomitant]
  8. VIVILLE [Concomitant]

REACTIONS (1)
  - ERYTHEMA OF EYELID [None]
